FAERS Safety Report 25975468 (Version 1)
Quarter: 2025Q4

REPORT INFORMATION
  Report Type: Spontaneous
  Country: US (occurrence: None)
  Receive Date: 20251029
  Receipt Date: 20251029
  Transmission Date: 20260118
  Serious: Yes (Death)
  Sender: FDA-CTU
  Company Number: None

PATIENT
  Age: 48 Year
  Sex: Female

DRUGS (22)
  1. COLLAGENASE SANTYL [Suspect]
     Active Substance: COLLAGENASE CLOSTRIDIUM HISTOLYTICUM
     Indication: Wound
     Dosage: OTHER QUANTITY : 1 APPLICATION;?FREQUENCY : DAILY;?
     Route: 061
     Dates: start: 20230113, end: 20251004
  2. diclofenac 1 %, gel [Concomitant]
  3. LIDOCAINE [Concomitant]
     Active Substance: LIDOCAINE
  4. METOCLOPRAMIDE [Concomitant]
     Active Substance: METOCLOPRAMIDE
  5. LINEZOLID [Concomitant]
     Active Substance: LINEZOLID
  6. ELIQUIS [Concomitant]
     Active Substance: APIXABAN
  7. SPIRONOLACTONE [Concomitant]
     Active Substance: SPIRONOLACTONE
  8. MIDODRINE HYDROCHLORIDE [Concomitant]
     Active Substance: MIDODRINE HYDROCHLORIDE
  9. FUROSEMIDE [Concomitant]
     Active Substance: FUROSEMIDE
  10. LEVETIRACETAM [Concomitant]
     Active Substance: LEVETIRACETAM
  11. mirabegron 50 mg ER [Concomitant]
  12. droxidopa 100 mg [Concomitant]
  13. ASPIRIN [Concomitant]
     Active Substance: ASPIRIN
  14. DIETARY SUPPLEMENT\PROBIOTICS [Concomitant]
     Active Substance: DIETARY SUPPLEMENT\PROBIOTICS NOS
  15. COLLAGENASE SANTYL [Concomitant]
     Active Substance: COLLAGENASE CLOSTRIDIUM HISTOLYTICUM
  16. mnorphine sulf 1 00mg/5 ml [Concomitant]
  17. HALOPERIDOL [Concomitant]
     Active Substance: HALOPERIDOL
  18. DIAZEPAM [Concomitant]
     Active Substance: DIAZEPAM
  19. megesterol acetate 40 [Concomitant]
  20. Lactulose 10 gm/15 ml [Concomitant]
  21. ACETAMINOPHEN\HYDROCODONE [Concomitant]
     Active Substance: ACETAMINOPHEN\HYDROCODONE
  22. potassium chloride 10% liquid [Concomitant]

REACTIONS (1)
  - Death [None]

NARRATIVE: CASE EVENT DATE: 20251004
